FAERS Safety Report 24104482 (Version 1)
Quarter: 2024Q3

REPORT INFORMATION
  Report Type: Spontaneous
  Country: US (occurrence: US)
  Receive Date: 20240717
  Receipt Date: 20240717
  Transmission Date: 20241017
  Serious: Yes (Other)
  Sender: BAUSCH AND LOMB
  Company Number: US-BAUSCH-BL-2024-010887

PATIENT
  Age: 72 Year
  Sex: Female

DRUGS (10)
  1. RIFAXIMIN [Suspect]
     Active Substance: RIFAXIMIN
     Indication: Hepatitis B reactivation
     Route: 065
  2. RIFAXIMIN [Suspect]
     Active Substance: RIFAXIMIN
     Indication: Adjuvant therapy
  3. ENTECAVIR [Suspect]
     Active Substance: ENTECAVIR
     Indication: Hepatitis B reactivation
     Route: 065
  4. ENTECAVIR [Suspect]
     Active Substance: ENTECAVIR
     Indication: Adjuvant therapy
  5. ACETYLCYSTEINE [Suspect]
     Active Substance: ACETYLCYSTEINE
     Indication: Hepatitis B reactivation
     Route: 065
  6. ACETYLCYSTEINE [Suspect]
     Active Substance: ACETYLCYSTEINE
     Indication: Adjuvant therapy
  7. LACTULOSE [Suspect]
     Active Substance: LACTULOSE
     Indication: Hepatitis B reactivation
     Route: 065
  8. LACTULOSE [Suspect]
     Active Substance: LACTULOSE
     Indication: Adjuvant therapy
  9. VITAMIN K [Suspect]
     Active Substance: PHYTONADIONE
     Indication: Hepatitis B reactivation
     Route: 065
  10. VITAMIN K [Suspect]
     Active Substance: PHYTONADIONE
     Indication: Adjuvant therapy

REACTIONS (2)
  - Hepatic failure [Unknown]
  - Drug ineffective for unapproved indication [Unknown]
